FAERS Safety Report 9478327 (Version 1)
Quarter: 2013Q3

REPORT INFORMATION
  Report Type: Spontaneous
  Country: US (occurrence: None)
  Receive Date: 20130822
  Receipt Date: 20130822
  Transmission Date: 20140515
  Serious: Yes (Hospitalization)
  Sender: FDA-Public Use
  Company Number: JPI-P-034492

PATIENT
  Age: 50 Year
  Sex: Male

DRUGS (6)
  1. XYREM [Suspect]
     Indication: CATAPLEXY
     Dosage: UNKNOWN DOSE 2 IN 1 D
     Route: 048
     Dates: start: 20100909
  2. MODAFINIL FLUTICASONE PROPIONATE AND SALMETEROL [Concomitant]
  3. CHOLESTEROL MEDICATIONS [Concomitant]
  4. BLOOD PRESSURE MEDICATIONS [Concomitant]
  5. WATER PILL [Concomitant]
  6. ARTHRITIS PILL [Concomitant]

REACTIONS (2)
  - Post procedural infection [None]
  - Haemorrhoid operation [None]
